FAERS Safety Report 6749535-7 (Version None)
Quarter: 2010Q2

REPORT INFORMATION
  Report Type: 
  Country: None (occurrence: None)
  Receive Date: 20100527
  Receipt Date: 20100527
  Transmission Date: 20101027
  Serious: Yes (Hospitalization)
  Sender: FDA-Public Use
  Company Number: None

PATIENT

DRUGS (5)
  1. DEPAKOTE [Suspect]
  2. LITHIUM CARBONATE [Suspect]
  3. THORAZINE [Suspect]
  4. TEGRETOL [Suspect]
  5. RISPERDAL [Suspect]

REACTIONS (12)
  - ABDOMINAL DISTENSION [None]
  - ABNORMAL BEHAVIOUR [None]
  - ABNORMAL DREAMS [None]
  - AGITATION [None]
  - CONFUSIONAL STATE [None]
  - DELUSION [None]
  - DIZZINESS [None]
  - DYSGEUSIA [None]
  - HEART RATE INCREASED [None]
  - OBESITY [None]
  - SOMNOLENCE [None]
  - THINKING ABNORMAL [None]
